FAERS Safety Report 18830603 (Version 1)
Quarter: 2021Q1

REPORT INFORMATION
  Report Type: Spontaneous
  Country: US (occurrence: US)
  Receive Date: 20210201
  Receipt Date: 20210201
  Transmission Date: 20210419
  Serious: No
  Sender: FDA-Public Use
  Company Number: US-ABBVIE-20K-163-3668089-00

PATIENT
  Age: 20 Year

DRUGS (1)
  1. HUMIRA [Suspect]
     Active Substance: ADALIMUMAB
     Indication: PRODUCT USED FOR UNKNOWN INDICATION
     Route: 058

REACTIONS (11)
  - Feeling abnormal [Unknown]
  - Ankylosing spondylitis [Unknown]
  - Unevaluable event [Unknown]
  - Back pain [Unknown]
  - Clostridium difficile infection [Unknown]
  - Spinal pain [Not Recovered/Not Resolved]
  - Food allergy [Unknown]
  - Sinusitis [Unknown]
  - Colitis ulcerative [Recovered/Resolved]
  - Exostosis [Unknown]
  - Gastric disorder [Unknown]
